FAERS Safety Report 5229147-7 (Version None)
Quarter: 2007Q1

REPORT INFORMATION
  Report Type: 
  Country: None (occurrence: None)
  Receive Date: 20061201
  Receipt Date: 20061013
  Transmission Date: 20070707
  Serious: No
  Sender: FDA-Public Use
  Company Number: US200610002561

PATIENT
  Age: 67 Year
  Sex: Female

DRUGS (9)
  1. CYMBALTA [Suspect]
     Indication: PAIN
     Dosage: 60 MG DAILY (1/D) ; 60 MG DAILY (1/D) ; 30 MG DAILY (1/D)
     Dates: start: 20060101
  2. CYMBALTA [Suspect]
     Indication: PAIN
     Dosage: 60 MG DAILY (1/D) ; 60 MG DAILY (1/D) ; 30 MG DAILY (1/D)
     Dates: start: 20060101
  3. CYMBALTA [Suspect]
     Indication: PAIN
     Dosage: 60 MG DAILY (1/D) ; 60 MG DAILY (1/D) ; 30 MG DAILY (1/D)
     Dates: start: 20060101
  4. LIPITOR [Concomitant]
  5. TOPROL-XL [Concomitant]
  6. SYNTHROID [Concomitant]
  7. NEURONTIN [Concomitant]
  8. ATIVAN [Concomitant]
  9. ULTRAM [Concomitant]

REACTIONS (6)
  - ASTHENIA [None]
  - DECREASED APPETITE [None]
  - GASTROINTESTINAL DISORDER [None]
  - HEADACHE [None]
  - MALAISE [None]
  - PAIN [None]
